FAERS Safety Report 4907958-2 (Version None)
Quarter: 2006Q1

REPORT INFORMATION
  Report Type: 
  Country: None (occurrence: None)
  Receive Date: 20060210
  Receipt Date: 20060130
  Transmission Date: 20060701
  Serious: Yes (Hospitalization)
  Sender: FDA-Public Use
  Company Number: 2006CG00218

PATIENT
  Age: 78 Year
  Sex: Male

DRUGS (6)
  1. CASODEX [Suspect]
     Indication: PROSTATE CANCER
     Route: 048
  2. ENANTONE [Suspect]
     Indication: PROSTATE CANCER
  3. DI HYDAN [Concomitant]
     Route: 048
  4. LASILIX [Concomitant]
     Route: 048
  5. DIFFU K [Concomitant]
     Route: 048
  6. AMLOR [Concomitant]
     Route: 048

REACTIONS (5)
  - DIARRHOEA [None]
  - ENCEPHALOPATHY [None]
  - FACIAL PALSY [None]
  - POLYNEUROPATHY [None]
  - RESPIRATORY DISTRESS [None]
